FAERS Safety Report 5579774-2 (Version None)
Quarter: 2008Q1

REPORT INFORMATION
  Report Type: 
  Country: None (occurrence: None)
  Receive Date: 20080102
  Receipt Date: 20071221
  Transmission Date: 20080703
  Serious: Yes (Other)
  Sender: FDA-Public Use
  Company Number: US-PFIZER INC-2007108471

PATIENT
  Sex: Male
  Weight: 63.181 kg

DRUGS (9)
  1. CHANTIX [Suspect]
     Indication: SMOKING CESSATION THERAPY
  2. ADVAIR DISKUS 100/50 [Concomitant]
  3. XANAX [Concomitant]
  4. ACETYLSALICYLIC ACID SRT [Concomitant]
  5. DYAZIDE [Concomitant]
  6. LEXAPRO [Concomitant]
  7. LIPITOR [Concomitant]
  8. PLAVIX [Concomitant]
  9. PSYLLIUM [Concomitant]

REACTIONS (2)
  - DIZZINESS [None]
  - FALL [None]
